FAERS Safety Report 6852268-X (Version None)
Quarter: 2010Q3

REPORT INFORMATION
  Report Type: 
  Country: None (occurrence: None)
  Receive Date: 20100717
  Receipt Date: 20071111
  Transmission Date: 20110219
  Serious: No
  Sender: FDA-Public Use
  Company Number: US-PFIZER INC-2007096613

PATIENT
  Age: 35 Year
  Sex: Female
  Weight: 58.2 kg

DRUGS (2)
  1. CHANTIX [Suspect]
     Indication: SMOKING CESSATION THERAPY
     Dates: start: 20071029
  2. PROZAC [Concomitant]

REACTIONS (1)
  - NAUSEA [None]
